FAERS Safety Report 7229145-8 (Version None)
Quarter: 2011Q1

REPORT INFORMATION
  Report Type: 
  Country: None (occurrence: None)
  Receive Date: 20110117
  Receipt Date: 20110106
  Transmission Date: 20110831
  Serious: Yes (Other)
  Sender: FDA-Public Use
  Company Number: DE-PFIZER INC-2011003485

PATIENT
  Age: 45 Year
  Sex: Female

DRUGS (2)
  1. OPIPRAMOL [Concomitant]
     Dosage: UNK
  2. XALATAN [Suspect]
     Dosage: UNK
     Route: 047

REACTIONS (2)
  - DYSPNOEA [None]
  - COUGH [None]
